FAERS Safety Report 23795753 (Version 1)
Quarter: 2024Q2

REPORT INFORMATION
  Report Type: Spontaneous
  Country: US (occurrence: US)
  Receive Date: 20240429
  Receipt Date: 20240429
  Transmission Date: 20240716
  Serious: Yes (Disabling)
  Sender: FDA-Public Use
  Company Number: US-MIRATI-MT2024PM06494

PATIENT

DRUGS (2)
  1. KRAZATI [Suspect]
     Active Substance: ADAGRASIB
     Indication: Lung adenocarcinoma stage IV
     Dosage: 600 MG, BID
     Route: 048
     Dates: start: 20240206
  2. KRAZATI [Suspect]
     Active Substance: ADAGRASIB
     Dosage: 400 MG, BID
     Route: 048
     Dates: start: 202403, end: 202404

REACTIONS (8)
  - Dyspnoea [Not Recovered/Not Resolved]
  - Aspartate aminotransferase increased [Recovered/Resolved]
  - Alanine aminotransferase increased [Recovered/Resolved]
  - Blood creatinine increased [Not Recovered/Not Resolved]
  - Peripheral swelling [Not Recovered/Not Resolved]
  - Peripheral swelling [Not Recovered/Not Resolved]
  - Hypoacusis [Not Recovered/Not Resolved]
  - Neoplasm progression [Not Recovered/Not Resolved]

NARRATIVE: CASE EVENT DATE: 20240201
